FAERS Safety Report 8223852-6 (Version None)
Quarter: 2012Q1

REPORT INFORMATION
  Report Type: 
  Country: None (occurrence: None)
  Receive Date: 20120312
  Receipt Date: 20120229
  Transmission Date: 20120608
  Serious: Yes (Other)
  Sender: FDA-Public Use
  Company Number: 2012SP011377

PATIENT
  Sex: Male

DRUGS (4)
  1. RIBAVIRIN [Suspect]
     Indication: HEPATITIS C
     Dates: start: 20071102, end: 20081003
  2. RIBAVIRIN [Suspect]
     Indication: HEPATITIS C
     Dates: start: 20120228
  3. PEG-INTRON [Suspect]
     Indication: HEPATITIS C
     Dates: start: 20120228
  4. PEG-INTRON [Suspect]
     Indication: HEPATITIS C
     Dates: start: 20071102, end: 20081003

REACTIONS (3)
  - GOITRE [None]
  - DISEASE RECURRENCE [None]
  - HEPATITIS C [None]
